FAERS Safety Report 8950307 (Version 1)
Quarter: 2012Q4

REPORT INFORMATION
  Report Type: Spontaneous
  Country: US (occurrence: None)
  Receive Date: 20121130
  Receipt Date: 20121130
  Transmission Date: 20130627
  Serious: Yes (Other)
  Sender: FDA-Public Use
  Company Number: None

PATIENT
  Age: 68 Year
  Sex: Female
  Weight: 47 kg

DRUGS (1)
  1. PACLITAXEL [Suspect]
     Indication: LUNG CANCER
     Dosage: once
     Route: 041
     Dates: start: 20121129, end: 20121129

REACTIONS (4)
  - Flushing [None]
  - Seizure like phenomena [None]
  - Infusion related reaction [None]
  - Unresponsive to stimuli [None]
